FAERS Safety Report 8011135-9 (Version None)
Quarter: 2011Q4

REPORT INFORMATION
  Report Type: 
  Country: None (occurrence: None)
  Receive Date: 20111228
  Receipt Date: 20111219
  Transmission Date: 20120403
  Serious: Yes (Hospitalization)
  Sender: FDA-Public Use
  Company Number: JP-NOVOPROD-336322

PATIENT

DRUGS (6)
  1. AMARYL [Concomitant]
     Dosage: 1.5 MG, QD
     Route: 048
     Dates: start: 20101205
  2. BEZATOL [Concomitant]
     Dosage: 200 MG, QD
     Route: 048
     Dates: start: 20080731
  3. METGLUCON [Concomitant]
     Dosage: 1000 MG, QD
     Route: 048
     Dates: start: 20100401
  4. VICTOZA [Suspect]
     Indication: TYPE 2 DIABETES MELLITUS
     Dosage: UNK
     Route: 058
  5. ZETIA [Concomitant]
     Dosage: 10 MG, QD
     Route: 048
     Dates: start: 20110330
  6. LANSOPRAZOLE [Concomitant]
     Dosage: UNK
     Route: 048

REACTIONS (6)
  - NAUSEA [None]
  - INTENTIONAL OVERDOSE [None]
  - GASTROINTESTINAL DISORDER [None]
  - SUICIDE ATTEMPT [None]
  - EATING DISORDER [None]
  - BLOOD GLUCOSE FLUCTUATION [None]
